FAERS Safety Report 25102671 (Version 1)
Quarter: 2025Q1

REPORT INFORMATION
  Report Type: Spontaneous
  Country: JP (occurrence: JP)
  Receive Date: 20250321
  Receipt Date: 20250321
  Transmission Date: 20250409
  Serious: Yes (Life-Threatening, Other)
  Sender: RANBAXY
  Company Number: JP-SUN PHARMACEUTICAL INDUSTRIES LTD-2025R1-499826

PATIENT
  Sex: Male

DRUGS (2)
  1. RITODRINE [Suspect]
     Active Substance: RITODRINE
     Indication: Uterine contractions during pregnancy
     Route: 064
  2. MAGNESIUM SULFATE [Suspect]
     Active Substance: MAGNESIUM SULFATE
     Indication: Uterine contractions during pregnancy
     Route: 064

REACTIONS (9)
  - Circulatory collapse [Unknown]
  - Pulmonary hypertension [Unknown]
  - Disseminated intravascular coagulation in newborn [Unknown]
  - Neonatal respiratory distress syndrome [Unknown]
  - Foetal exposure during pregnancy [Unknown]
  - Premature baby [Unknown]
  - Low birth weight baby [Unknown]
  - Hyperkalaemia [Unknown]
  - Hypocalcaemia [Unknown]
